FAERS Safety Report 7782186-4 (Version None)
Quarter: 2011Q3

REPORT INFORMATION
  Report Type: 
  Country: None (occurrence: None)
  Receive Date: 20110927
  Receipt Date: 20110921
  Transmission Date: 20111222
  Serious: Yes (Hospitalization)
  Sender: FDA-Public Use
  Company Number: US-AMGEN-USACT2011038861

PATIENT
  Age: 66 Year
  Sex: Male

DRUGS (12)
  1. PANITUMUMAB [Suspect]
     Indication: HEAD AND NECK CANCER
     Dosage: 619 MG, Q3WK
     Route: 042
     Dates: start: 20110405, end: 20110719
  2. SALINE [Concomitant]
  3. LYRICA [Concomitant]
     Dosage: 150 MG, Q12H
  4. TAXOTERE [Concomitant]
     Dosage: UNK
     Dates: start: 20100101
  5. SIMETHICONE [Concomitant]
     Dosage: 125 MG, BID
  6. CISPLATIN [Concomitant]
     Dosage: UNK
     Dates: start: 20100101
  7. MIRALAX [Concomitant]
     Dosage: 17 G, PRN
  8. ATIVAN [Concomitant]
     Dosage: 1 MG, Q6H
  9. DIPHENHYDRAMINE HCL [Concomitant]
     Dosage: 25 MG, PRN
  10. MULTI-VITAMIN [Concomitant]
  11. SYNTHROID [Concomitant]
     Dosage: 112 MUG, UNK
     Route: 048
  12. PERCOCET [Concomitant]
     Dosage: UNK UNK, PRN

REACTIONS (2)
  - METASTASES TO CENTRAL NERVOUS SYSTEM [None]
  - HEMIPARESIS [None]
